FAERS Safety Report 19909015 (Version 1)
Quarter: 2021Q4

REPORT INFORMATION
  Report Type: Report from Study
  Country: US (occurrence: US)
  Receive Date: 20211002
  Receipt Date: 20211002
  Transmission Date: 20220304
  Serious: Yes (Other)
  Sender: FDA-Public Use
  Company Number: US-TAKEDA-2019TUS061449

PATIENT
  Age: 76 Year
  Sex: Male
  Weight: 62 kg

DRUGS (4)
  1. IXAZOMIB [Suspect]
     Active Substance: IXAZOMIB
     Indication: Plasma cell myeloma
     Dosage: 2.3 MILLIGRAM
     Route: 065
  2. REVLIMID [Concomitant]
     Active Substance: LENALIDOMIDE
     Dosage: UNK
     Route: 048
  3. ACYCLOVIR [Concomitant]
     Active Substance: ACYCLOVIR
     Dosage: 80 MILLIGRAM, TID
     Route: 048
  4. DEXAMETHASONE [Concomitant]
     Active Substance: DEXAMETHASONE
     Dosage: UNK
     Route: 048

REACTIONS (2)
  - Cardiac disorder [Unknown]
  - Product dose omission issue [Unknown]

NARRATIVE: CASE EVENT DATE: 20191025
